FAERS Safety Report 6435152-5 (Version None)
Quarter: 2009Q4

REPORT INFORMATION
  Report Type: 
  Country: None (occurrence: None)
  Receive Date: 20091110
  Receipt Date: 20090825
  Transmission Date: 20100525
  Serious: Yes (Other)
  Sender: FDA-Public Use
  Company Number: US-BRISTOL-MYERS SQUIBB COMPANY-14753784

PATIENT
  Sex: Female

DRUGS (1)
  1. IXEMPRA KIT [Suspect]

REACTIONS (8)
  - HEADACHE [None]
  - HYPOAESTHESIA [None]
  - LOSS OF CONSCIOUSNESS [None]
  - MALIGNANT NEOPLASM PROGRESSION [None]
  - MUSCULAR WEAKNESS [None]
  - PARAESTHESIA [None]
  - TREMOR [None]
  - VASOCONSTRICTION [None]
